FAERS Safety Report 15373286 (Version 5)
Quarter: 2022Q3

REPORT INFORMATION
  Report Type: Report from Study
  Country: JP (occurrence: JP)
  Receive Date: 20180912
  Receipt Date: 20220803
  Transmission Date: 20221026
  Serious: Yes (Other)
  Sender: FDA-Public Use
  Company Number: JP-AMGEN-JPNSP2017160513

PATIENT
  Age: 65 Year
  Sex: Female
  Weight: 58 kg

DRUGS (8)
  1. CARFILZOMIB [Suspect]
     Active Substance: CARFILZOMIB
     Indication: Plasma cell myeloma
     Dosage: 20MG/M2/DAY
     Route: 041
     Dates: start: 20170921
  2. CARFILZOMIB [Suspect]
     Active Substance: CARFILZOMIB
     Dosage: UNK
     Route: 041
     Dates: start: 20170921
  3. CARFILZOMIB [Suspect]
     Active Substance: CARFILZOMIB
     Dosage: UNK
     Route: 041
     Dates: start: 20170921
  4. DEXAMETHASONE [Concomitant]
     Active Substance: DEXAMETHASONE
     Indication: Plasma cell myeloma
     Dosage: 2017/9/21,9/22,9/28,9/29,10/5,10/6,10/12,10/13,10/19,10/20,10/26,10/27
     Route: 065
     Dates: start: 20170921
  5. DEXAMETHASONE [Concomitant]
     Active Substance: DEXAMETHASONE
     Dosage: 2017/11/2,11/3,11/9,11/10,11/16,11/17,11/30,12/1,12/7,12/8,12/14,12/15
     Route: 065
  6. DEXAMETHASONE [Concomitant]
     Active Substance: DEXAMETHASONE
     Dosage: 2017/12/21,12/22,12/28,12/29,2018/1/4,1/5,1/11,1/12,1/18,1/19,1/25,1/26
     Route: 065
  7. DEXAMETHASONE [Concomitant]
     Active Substance: DEXAMETHASONE
     Dosage: 2018/2/1,2/2,2/8,2/9,2/15,2/16,2/22,2/23,2/28,3/1,3/7,3/8
     Route: 065
     Dates: end: 20180308
  8. VALACYCLOVIR HYDROCHLORIDE [Concomitant]
     Active Substance: VALACYCLOVIR HYDROCHLORIDE
     Indication: Antiviral prophylaxis
     Dosage: UNK
     Route: 065
     Dates: start: 20170921

REACTIONS (2)
  - Hyperlipasaemia [Recovered/Resolved]
  - Hyperamylasaemia [Recovered/Resolved]

NARRATIVE: CASE EVENT DATE: 20170925
